FAERS Safety Report 24248257 (Version 5)
Quarter: 2024Q4

REPORT INFORMATION
  Report Type: Report from Study
  Country: US (occurrence: US)
  Receive Date: 20240826
  Receipt Date: 20241105
  Transmission Date: 20250115
  Serious: Yes (Hospitalization, Other)
  Sender: BAYER HEALTHCARE PHARMACEUTICALS INC.
  Company Number: US-BAYER-2024A098075

PATIENT
  Age: 39 Year
  Sex: Female

DRUGS (3)
  1. ADEMPAS [Suspect]
     Active Substance: RIOCIGUAT
     Indication: Pulmonary arterial hypertension
     Dosage: UNK
  2. ADEMPAS [Suspect]
     Active Substance: RIOCIGUAT
     Indication: Pulmonary arterial hypertension
     Dosage: 2.5 MG, TID
     Route: 048
     Dates: start: 202405
  3. REMODULIN [Suspect]
     Active Substance: TREPROSTINIL
     Dosage: 10 NG
     Dates: start: 20240713

REACTIONS (37)
  - Hospitalisation [None]
  - Bendopnoea [None]
  - Injection site haemorrhage [None]
  - Dyspnoea at rest [None]
  - Syncope [None]
  - Productive cough [Not Recovered/Not Resolved]
  - Oedema peripheral [Not Recovered/Not Resolved]
  - Dizziness exertional [Not Recovered/Not Resolved]
  - Chest discomfort [None]
  - Muscle spasms [None]
  - Headache [None]
  - Dyspnoea exertional [Not Recovered/Not Resolved]
  - Dyspnoea [None]
  - Headache [Not Recovered/Not Resolved]
  - Nausea [Not Recovered/Not Resolved]
  - Pain in jaw [Not Recovered/Not Resolved]
  - Dizziness [Not Recovered/Not Resolved]
  - Chest pain [Not Recovered/Not Resolved]
  - Gout [None]
  - Peripheral swelling [None]
  - Joint swelling [None]
  - Pain [Not Recovered/Not Resolved]
  - Diarrhoea [None]
  - Tenderness [None]
  - Injection site infection [None]
  - Injection site pain [Not Recovered/Not Resolved]
  - Headache [Not Recovered/Not Resolved]
  - Nausea [Not Recovered/Not Resolved]
  - Device expulsion [None]
  - Fatigue [Not Recovered/Not Resolved]
  - Fall [None]
  - Vomiting [None]
  - Multiple allergies [None]
  - Headache [Not Recovered/Not Resolved]
  - Pain in jaw [Not Recovered/Not Resolved]
  - Myalgia [Not Recovered/Not Resolved]
  - Arthralgia [Not Recovered/Not Resolved]

NARRATIVE: CASE EVENT DATE: 20240701
